FAERS Safety Report 8265299-2 (Version None)
Quarter: 2012Q2

REPORT INFORMATION
  Report Type: 
  Country: None (occurrence: None)
  Receive Date: 20120406
  Receipt Date: 20120330
  Transmission Date: 20120825
  Serious: Yes (Hospitalization)
  Sender: FDA-Public Use
  Company Number: BE-SANOFI-AVENTIS-2012SA016526

PATIENT
  Age: 73 Year
  Sex: Female
  Weight: 73.5 kg

DRUGS (11)
  1. OXALIPLATIN [Suspect]
     Indication: RECTAL CANCER
     Dosage: ACTUAL DOSE: 230.100 MG
     Route: 042
     Dates: start: 20110817, end: 20120307
  2. HYDROCHLOROTHIAZIDE [Concomitant]
     Route: 048
     Dates: start: 20120215
  3. THERAPEUTIC RADIOPHARMACEUTICALS [Suspect]
     Indication: RECTAL CANCER
     Dosage: DOSE: 50.400 GY
     Route: 065
     Dates: start: 20110817, end: 20110923
  4. BISOPROLOL FUMARATE [Concomitant]
     Indication: HYPERTENSION
     Route: 048
  5. CAPECITABINE [Suspect]
     Route: 048
     Dates: start: 20120308
  6. LEVOTHYROXINE SODIUM [Concomitant]
     Indication: HYPOTHYROIDISM
     Dosage: 1-0-0
     Route: 048
  7. CAPECITABINE [Suspect]
     Indication: RECTAL CANCER
     Route: 048
     Dates: start: 20110817, end: 20120228
  8. CAPECITABINE [Suspect]
     Dosage: SINGLE MORNING DOSE
     Route: 048
     Dates: start: 20120229, end: 20120229
  9. METOCLOPRAMIDE [Concomitant]
  10. PANTOZOL [Concomitant]
     Indication: PROPHYLAXIS
  11. ENALAPRIL MALEATE [Concomitant]
     Indication: HYPERTENSION
     Dosage: 0-0-1
     Route: 048
     Dates: start: 20120215

REACTIONS (4)
  - TRANSIENT ISCHAEMIC ATTACK [None]
  - DYSARTHRIA [None]
  - TETANY [None]
  - ATAXIA [None]
